FAERS Safety Report 5522472-1 (Version None)
Quarter: 2007Q4

REPORT INFORMATION
  Report Type: 
  Country: None (occurrence: None)
  Receive Date: 20071120
  Receipt Date: 20071031
  Transmission Date: 20080405
  Serious: Yes (Other)
  Sender: FDA-Public Use
  Company Number: US-PFIZER INC-2007072310

PATIENT
  Sex: Female
  Weight: 47.2 kg

DRUGS (7)
  1. CHANTIX [Suspect]
     Indication: SMOKING CESSATION THERAPY
     Route: 048
     Dates: start: 20070801, end: 20070807
  2. CHANTIX [Interacting]
     Indication: NICOTINE DEPENDENCE
  3. SYNTHROID [Interacting]
     Indication: THYROID DISORDER
  4. ATENOLOL [Concomitant]
  5. PRAVACHOL [Concomitant]
  6. METAGLIP [Concomitant]
  7. INSULIN [Concomitant]

REACTIONS (5)
  - DRUG INTERACTION [None]
  - INSOMNIA [None]
  - RESTLESS LEGS SYNDROME [None]
  - THYROID DISORDER [None]
  - WEIGHT INCREASED [None]
